FAERS Safety Report 22197747 (Version 1)
Quarter: 2023Q2

REPORT INFORMATION
  Report Type: Spontaneous
  Country: CN (occurrence: CN)
  Receive Date: 20230411
  Receipt Date: 20230411
  Transmission Date: 20230722
  Serious: Yes (Hospitalization)
  Sender: FDA-Public Use
  Company Number: CN-OTSUKA-2023_009036

PATIENT
  Age: 36 Year
  Sex: Male

DRUGS (2)
  1. SAMSCA [Suspect]
     Active Substance: TOLVAPTAN
     Indication: Nephrotic syndrome
     Dosage: 15 MG, QD
     Route: 048
     Dates: start: 20230308, end: 20230308
  2. CALCIUM CARBONATE\CHOLECALCIFEROL [Suspect]
     Active Substance: CALCIUM CARBONATE\CHOLECALCIFEROL
     Indication: Nephrotic syndrome
     Dosage: 500 MG, BID
     Route: 048
     Dates: start: 20230304, end: 20230310

REACTIONS (3)
  - Hypercalcaemia [Recovering/Resolving]
  - Hypernatraemia [Recovering/Resolving]
  - Product use in unapproved indication [Unknown]

NARRATIVE: CASE EVENT DATE: 20230308
